FAERS Safety Report 5108544-4 (Version None)
Quarter: 2006Q3

REPORT INFORMATION
  Report Type: 
  Country: None (occurrence: None)
  Receive Date: 20060731
  Receipt Date: 20060509
  Transmission Date: 20061208
  Serious: No
  Sender: FDA-Public Use
  Company Number: 2006PV013545

PATIENT
  Age: 66 Year
  Sex: Male

DRUGS (4)
  1. BYETTA [Suspect]
     Indication: DIABETES MELLITUS NON-INSULIN-DEPENDENT
     Dosage: SEE IMAGE
     Route: 058
     Dates: start: 20051201
  2. BYETTA [Suspect]
  3. NEXIUM [Concomitant]
  4. ALLEGRA [Concomitant]

REACTIONS (3)
  - FAECES HARD [None]
  - NAUSEA [None]
  - VISION BLURRED [None]
